FAERS Safety Report 10209919 (Version 2)
Quarter: 2014Q2

REPORT INFORMATION
  Report Type: Spontaneous
  Country: IE (occurrence: IE)
  Receive Date: 20140602
  Receipt Date: 20140617
  Transmission Date: 20141212
  Serious: Yes (Hospitalization, Other)
  Sender: FDA-Public Use
  Company Number: IE-JNJFOC-20140516193

PATIENT
  Age: 81 Year
  Sex: Female

DRUGS (7)
  1. XARELTO [Suspect]
     Indication: CEREBROVASCULAR ACCIDENT PROPHYLAXIS
     Route: 048
     Dates: start: 20130819, end: 20130925
  2. XARELTO [Suspect]
     Indication: ATRIAL FIBRILLATION
     Route: 048
     Dates: start: 20130819, end: 20130925
  3. DIAMICRON MR [Concomitant]
     Route: 065
  4. ATORVASTATIN [Concomitant]
     Route: 065
  5. ELTROXIN [Concomitant]
     Route: 065
  6. LANOXIN [Concomitant]
     Route: 065
  7. CALCIUM AND VITAMIN D [Concomitant]
     Route: 065

REACTIONS (2)
  - Oesophageal haemorrhage [Recovered/Resolved]
  - Oesophageal carcinoma [Unknown]
